FAERS Safety Report 14061231 (Version 1)
Quarter: 2017Q4

REPORT INFORMATION
  Report Type: Spontaneous
  Country: US (occurrence: US)
  Receive Date: 20171009
  Receipt Date: 20171009
  Transmission Date: 20180321
  Serious: No
  Sender: FDA-Public Use
  Company Number: US-ENDO PHARMACEUTICALS INC-2016-002004

PATIENT
  Age: 26 Year
  Sex: Female
  Weight: 62.65 kg

DRUGS (2)
  1. HEATHER [Concomitant]
     Active Substance: NORETHINDRONE
     Indication: CONTRACEPTION
  2. SPIRONOLACTONE TABLETS 25MG [Suspect]
     Active Substance: SPIRONOLACTONE
     Indication: ACNE
     Route: 048
     Dates: start: 20160303

REACTIONS (3)
  - Glossitis [Unknown]
  - Aphthous ulcer [Unknown]
  - Glossodynia [Unknown]

NARRATIVE: CASE EVENT DATE: 20160309
